FAERS Safety Report 7105427-5 (Version None)
Quarter: 2010Q4

REPORT INFORMATION
  Report Type: 
  Country: None (occurrence: None)
  Receive Date: 20101110
  Receipt Date: 20101028
  Transmission Date: 20110411
  Serious: Yes (Death)
  Sender: FDA-Public Use
  Company Number: 1000013873

PATIENT
  Age: 65 Year
  Sex: Female

DRUGS (13)
  1. MEMANTINE [Suspect]
     Dosage: 20 MG (10 MG, 2 IN 1 D), ORAL
     Route: 048
     Dates: start: 20091023
  2. PLAVIX [Suspect]
     Indication: VASCULAR DEMENTIA
     Dosage: 75 MG (75 MG, 1 IN 1 D), ORAL
     Route: 048
     Dates: start: 20081230, end: 20100429
  3. ASPIRIN [Suspect]
     Indication: VASCULAR DEMENTIA
     Dosage: 75 MG (75 MG, 1 IN 1 D), ORAL
     Route: 048
     Dates: start: 20090608, end: 20100429
  4. LANSOPRAZOLE [Concomitant]
  5. SOLIAN (AMISULPRIDE) (AMISULPRIDE) [Concomitant]
  6. SERETIDE (SERETIDE) (SERETIDE) [Concomitant]
  7. REMINYL (GALANTAMINE) (GALANTAMINE) [Concomitant]
  8. MIRAP (MIRTAZAPINE) (MIRTAZAPINE) [Concomitant]
  9. LIPITOR (ATORVASTATIN CALCIUM) (ATORVASTATIN CALCIUM) [Concomitant]
  10. LAMACITAL (LAMOTRIGINE) (LAMOTRIGINE) [Concomitant]
  11. FOLIC ACID (FOLIC ACID) (FOLIC ACID) [Concomitant]
  12. EFFEXOR (VENLAFAXINE) (VENLAFAXINE) [Concomitant]
  13. CAMCOLIT (LITHIUM CARBONATE) (LITHIUM CARBONATE) [Concomitant]

REACTIONS (7)
  - ASTHENIA [None]
  - BRAIN HERNIATION [None]
  - DYSARTHRIA [None]
  - HAEMORRHAGIC STROKE [None]
  - HYDROCEPHALUS [None]
  - INTRACRANIAL PRESSURE INCREASED [None]
  - LOSS OF CONSCIOUSNESS [None]
